FAERS Safety Report 5714207-4 (Version None)
Quarter: 2008Q2

REPORT INFORMATION
  Report Type: 
  Country: None (occurrence: None)
  Receive Date: 20080423
  Receipt Date: 20071004
  Transmission Date: 20081010
  Serious: No
  Sender: FDA-Public Use
  Company Number: US-KINGPHARMUSA00001-K200701295

PATIENT

DRUGS (2)
  1. SKELAXIN [Suspect]
     Indication: VERTEBRAL INJURY
     Dosage: 800 MG, TID TO QID
     Route: 048
     Dates: start: 20060101, end: 20060101
  2. LOESTRIN 1.5/30 [Concomitant]
     Indication: CONTRACEPTION
     Route: 048

REACTIONS (2)
  - ENERGY INCREASED [None]
  - INSOMNIA [None]
